FAERS Safety Report 9009804 (Version 2)
Quarter: 2013Q3

REPORT INFORMATION
  Report Type: Report from Study
  Country: US (occurrence: US)
  Receive Date: 20130110
  Receipt Date: 20130826
  Transmission Date: 20140515
  Serious: Yes (Death, Hospitalization)
  Sender: FDA-Public Use
  Company Number: US-ABBOTT-12P-163-1020912-00

PATIENT
  Age: 41 Year
  Sex: Female
  Weight: 53.12 kg

DRUGS (5)
  1. HUMIRA [Suspect]
     Indication: RHEUMATOID ARTHRITIS
     Dates: start: 20100601, end: 20121203
  2. PLAQUENIL S [Concomitant]
     Indication: PRODUCT USED FOR UNKNOWN INDICATION
  3. CELLCEPT [Concomitant]
     Indication: PRODUCT USED FOR UNKNOWN INDICATION
  4. PREDNISONE [Concomitant]
     Indication: PRODUCT USED FOR UNKNOWN INDICATION
  5. IMURAN [Concomitant]
     Indication: PRODUCT USED FOR UNKNOWN INDICATION

REACTIONS (6)
  - Cerebrovascular accident [Fatal]
  - Influenza [Not Recovered/Not Resolved]
  - Pyrexia [Fatal]
  - Muscular weakness [Recovering/Resolving]
  - Loss of consciousness [Fatal]
  - Cardio-respiratory arrest [Fatal]
